FAERS Safety Report 8841757 (Version 3)
Quarter: 2013Q1

REPORT INFORMATION
  Report Type: Spontaneous
  Country: US (occurrence: US)
  Receive Date: 20121016
  Receipt Date: 20130110
  Transmission Date: 20140127
  Serious: No
  Sender: FDA-Public Use
  Company Number: US-009507513-1210USA003569

PATIENT
  Sex: Female
  Weight: 72.56 kg

DRUGS (5)
  1. NUVARING [Suspect]
     Indication: CONTRACEPTION
     Dosage: UNK
     Route: 067
     Dates: start: 20060228
  2. VITAMIN B (UNSPECIFIED) [Concomitant]
  3. LEVOTHYROXINE SODIUM [Concomitant]
  4. PRILOSEC [Concomitant]
  5. ALPRAZOLAM [Concomitant]
     Dosage: UNK, PRN

REACTIONS (2)
  - Vulvovaginal discomfort [Unknown]
  - Device expulsion [Unknown]
